FAERS Safety Report 15095167 (Version 5)
Quarter: 2018Q4

REPORT INFORMATION
  Report Type: Spontaneous
  Country: PT (occurrence: PT)
  Receive Date: 20180702
  Receipt Date: 20181009
  Transmission Date: 20190204
  Serious: Yes (Other)
  Sender: FDA-Public Use
  Company Number: PT-BAXTER-2018BAX018027

PATIENT
  Age: 36 Year
  Sex: Female

DRUGS (6)
  1. DICLOFENAC [Suspect]
     Active Substance: DICLOFENAC
     Indication: PRODUCT USED FOR UNKNOWN INDICATION
     Dosage: UNK;  START PERIOD: 2 HOURS
     Route: 048
  2. CETOROLAC DE TROMETAMINA 30 MG/ML SOLU??O INJET?VEL [Suspect]
     Active Substance: KETOROLAC TROMETHAMINE
     Indication: PRODUCT USED FOR UNKNOWN INDICATION
     Dosage: UNK; START PERIOD: 2 (HOURS)
     Route: 065
  3. METAMIZOLE SODIUM [Suspect]
     Active Substance: METAMIZOLE SODIUM
     Indication: PRODUCT USED FOR UNKNOWN INDICATION
     Dosage: UNK START PERIOD: 2 (HOURS)
     Route: 048
  4. BUSCO IBUPROFEN [Suspect]
     Active Substance: IBUPROFEN
     Indication: PRODUCT USED FOR UNKNOWN INDICATION
     Dosage: UNK; START PERIOD: 2 (HOURS)
     Route: 048
  5. LISALGIL [Suspect]
     Active Substance: METAMIZOLE SODIUM
     Indication: PRODUCT USED FOR UNKNOWN INDICATION
     Dosage: UNK; START PERIOD: 2 HOURS
     Route: 048
  6. NOLOTIL (METAMIZOLE MAGNESIUM) [Suspect]
     Active Substance: METAMIZOLE MAGNESIUM
     Indication: PRODUCT USED FOR UNKNOWN INDICATION
     Dosage: (METAMIZOLE MAGNESIUM); UNK START PERIOD: 2 (HOURS)
     Route: 065

REACTIONS (2)
  - Drug intolerance [Unknown]
  - Angioedema [Recovered/Resolved]
